FAERS Safety Report 8682647 (Version 3)
Quarter: 2012Q4

REPORT INFORMATION
  Report Type: Report from Study
  Country: US (occurrence: US)
  Receive Date: 20120725
  Receipt Date: 20121206
  Transmission Date: 20130627
  Serious: Yes (Hospitalization)
  Sender: FDA-Public Use
  Company Number: US-US-EMD SERONO, INC.-7148905

PATIENT
  Sex: Male
  Weight: 94 kg

DRUGS (6)
  1. REBIF [Suspect]
     Indication: MULTIPLE SCLEROSIS
     Route: 058
     Dates: start: 20120321
  2. TYLENOL [Concomitant]
     Indication: PREMEDICATION
  3. FLOMAX [Concomitant]
     Indication: MICTURITION URGENCY
  4. NEURONTIN [Concomitant]
     Indication: PAIN
  5. NORCO [Concomitant]
     Indication: PAIN
     Dosage: 10/325
  6. METHADONE [Concomitant]
     Indication: PAIN

REACTIONS (2)
  - Myelopathy [Recovering/Resolving]
  - Muscular weakness [Recovering/Resolving]
